FAERS Safety Report 25898211 (Version 1)
Quarter: 2025Q4

REPORT INFORMATION
  Report Type: Spontaneous
  Country: CN (occurrence: CN)
  Receive Date: 20251008
  Receipt Date: 20251008
  Transmission Date: 20260118
  Serious: Yes (Hospitalization)
  Sender: PRINSTON PHARMACEUTICAL
  Company Number: CN-PRINSTON PHARMACEUTICAL INC.-2025PRN00329

PATIENT
  Age: 58 Year
  Sex: Female

DRUGS (3)
  1. METFORMIN [Suspect]
     Active Substance: METFORMIN HYDROCHLORIDE
     Dosage: 30 TABLETS (15 G)
     Route: 048
     Dates: start: 20220628, end: 20220628
  2. ENALAPRIL MALEATE [Suspect]
     Active Substance: ENALAPRIL MALEATE
     Dosage: 16 TABLETS (80 MG)
     Route: 048
     Dates: start: 20220628, end: 20220628
  3. RESERPINE [Suspect]
     Active Substance: RESERPINE
     Dosage: 100 TABLETS (25 MG)
     Route: 048
     Dates: start: 20220628, end: 20220628

REACTIONS (5)
  - Shock [Recovered/Resolved]
  - Multiple organ dysfunction syndrome [Recovered/Resolved]
  - Lactic acidosis [Recovered/Resolved]
  - Hypoglycaemia [Recovered/Resolved]
  - Overdose [Unknown]

NARRATIVE: CASE EVENT DATE: 20220628
